FAERS Safety Report 10585831 (Version 2)
Quarter: 2014Q4

REPORT INFORMATION
  Report Type: Spontaneous
  Country: CH (occurrence: CH)
  Receive Date: 20141114
  Receipt Date: 20141114
  Transmission Date: 20150529
  Serious: Yes (Hospitalization)
  Sender: FDA-Public Use
  Company Number: CH-PFIZER INC-2014266996

PATIENT
  Age: 58 Year
  Sex: Female
  Weight: 118 kg

DRUGS (7)
  1. LYRICA [Suspect]
     Active Substance: PREGABALIN
     Dosage: 100 MG, 2X/DAY
     Route: 048
     Dates: start: 20140213
  2. SEQUASE [Concomitant]
     Active Substance: QUETIAPINE FUMARATE
     Indication: AGITATION
     Dosage: 250 MG, 3X/DAY
     Route: 048
  3. QUILONORM RETARD [Concomitant]
     Active Substance: LITHIUM CARBONATE
     Indication: DEPRESSION
     Dosage: UNK UNK, 2X/DAY
     Route: 048
     Dates: start: 20140901
  4. TEMESTA [Concomitant]
     Active Substance: LORAZEPAM
     Indication: ANXIETY
  5. CIPRALEX [Concomitant]
     Active Substance: ESCITALOPRAM OXALATE
     Dosage: 40 MG, 1X/DAY
     Route: 048
     Dates: start: 20140901
  6. TEMESTA [Concomitant]
     Active Substance: LORAZEPAM
     Indication: AGITATION
     Dosage: 2 MG, 2-3 TIMES DAILY
     Route: 048
  7. XANAX [Concomitant]
     Active Substance: ALPRAZOLAM
     Dosage: 1.5 MG, 3X/DAY
     Route: 048
     Dates: start: 20140901, end: 20140916

REACTIONS (4)
  - Drug level increased [Unknown]
  - Somnolence [Recovered/Resolved]
  - Overdose [Unknown]
  - Syncope [Recovered/Resolved]

NARRATIVE: CASE EVENT DATE: 20140916
